FAERS Safety Report 14203764 (Version 2)
Quarter: 2017Q4

REPORT INFORMATION
  Report Type: Spontaneous
  Country: US (occurrence: US)
  Receive Date: 20171120
  Receipt Date: 20171201
  Transmission Date: 20180321
  Serious: No
  Sender: FDA-Public Use
  Company Number: US-PFIZER INC-2014185037

PATIENT
  Sex: Female

DRUGS (1)
  1. LYRICA [Suspect]
     Active Substance: PREGABALIN
     Dosage: UNK UNK, DAILY

REACTIONS (5)
  - Pain [Unknown]
  - Neuropathy peripheral [Unknown]
  - Insomnia [Unknown]
  - Condition aggravated [Unknown]
  - Withdrawal syndrome [Unknown]
